FAERS Safety Report 21682321 (Version 3)
Quarter: 2022Q4

REPORT INFORMATION
  Report Type: Report from Study
  Country: IL (occurrence: None)
  Receive Date: 20221205
  Receipt Date: 20221213
  Transmission Date: 20230112
  Serious: Yes (Death, Hospitalization)
  Sender: FDA-Public Use
  Company Number: IL-ROCHE-3229909

PATIENT
  Age: 87 Year
  Sex: Male
  Weight: 59 kg

DRUGS (3)
  1. OBINUTUZUMAB [Suspect]
     Active Substance: OBINUTUZUMAB
     Indication: Richter^s syndrome
     Dosage: DATE OF LAST DOSE PRIOR TO EVENT 26/OCT/2022
     Route: 042
     Dates: start: 20220718
  2. VENETOCLAX [Suspect]
     Active Substance: VENETOCLAX
     Indication: Richter^s syndrome
     Dosage: LAST DOSE PRIOR TO AE 21/NOV/2022
     Route: 065
     Dates: start: 20220809
  3. IBRUTINIB [Suspect]
     Active Substance: IBRUTINIB
     Indication: Richter^s syndrome
     Dosage: LAST DOSE PRIOR TO ADVERSE EVENT 21/NOV/2022
     Route: 048
     Dates: start: 20220718

REACTIONS (1)
  - General physical health deterioration [Fatal]

NARRATIVE: CASE EVENT DATE: 20221128
